FAERS Safety Report 25358051 (Version 2)
Quarter: 2025Q2

REPORT INFORMATION
  Report Type: Spontaneous
  Country: US (occurrence: US)
  Receive Date: 20250526
  Receipt Date: 20250528
  Transmission Date: 20250716
  Serious: Yes (Hospitalization, Other)
  Sender: ALEXION PHARMACEUTICALS
  Company Number: US-ASTRAZENECA-202505USA019077US

PATIENT
  Age: 71 Year
  Weight: 76.48 kg

DRUGS (29)
  1. ROSUVASTATIN [Concomitant]
     Active Substance: ROSUVASTATIN
     Route: 065
  2. VUDALIMAB [Suspect]
     Active Substance: VUDALIMAB
     Indication: Adenocarcinoma
     Dosage: 10 MG/KG (TOTAL ADMINISTERED DOSE WAS 853  MG) , QD
  3. VUDALIMAB [Suspect]
     Active Substance: VUDALIMAB
     Dosage: 10 MG/KG (TOTAL DOSE 853 MG), Q2W
  4. VUDALIMAB [Suspect]
     Active Substance: VUDALIMAB
     Dosage: 10 MG/KG (TOTAL DOSE 853 MG), Q2W
  5. VUDALIMAB [Suspect]
     Active Substance: VUDALIMAB
  6. VUDALIMAB [Suspect]
     Active Substance: VUDALIMAB
     Dosage: 10 MG/KG (TOTAL  ADMINISTERED DOSE WAS 853 MG), Q2W
  7. VUDALIMAB [Suspect]
     Active Substance: VUDALIMAB
     Dosage: 10 MG/KG (TOTAL ADMINISTERED DOSE WAS 853 MG), Q2W
  8. VUDALIMAB [Suspect]
     Active Substance: VUDALIMAB
     Dosage: 10 MG/KG (TOTAL ADMINISTERED DOSE WAS 853 MG), Q2W
  9. DOCETAXEL [Suspect]
     Active Substance: DOCETAXEL
     Indication: Adenocarcinoma
     Dosage: DOSE OF 75 MG/M2 (TOTAL DOSE ADMINISTERED 153 MG), Q3W
  10. DOCETAXEL [Suspect]
     Active Substance: DOCETAXEL
     Dosage: DOSE OF 75 MG/M2 (TOTAL DOSE ADMINISTERED 153 MG), Q3W
  11. DOCETAXEL [Suspect]
     Active Substance: DOCETAXEL
     Dosage: DOSE OF 75 MG/M2 (TOTAL DOSE ADMINISTERED 153 MG), Q3W
  12. DOCETAXEL [Suspect]
     Active Substance: DOCETAXEL
     Dosage: DOSE OF 75 MG/M2 (TOTAL DOSE ADMINISTERED 153 MG), Q3W
  13. VALSARTAN [Concomitant]
     Active Substance: VALSARTAN
     Route: 065
  14. FOLIC ACID [Concomitant]
     Active Substance: FOLIC ACID
     Route: 065
  15. LUPRON [Concomitant]
     Active Substance: LEUPROLIDE ACETATE
     Indication: Prostate cancer
     Route: 065
  16. CALCIUM [Concomitant]
     Active Substance: CALCIUM
     Route: 065
  17. VITAMIN D3 [Concomitant]
     Active Substance: CHOLECALCIFEROL
     Route: 065
  18. RELUGOLIX [Concomitant]
     Active Substance: RELUGOLIX
     Indication: Prostate cancer
     Route: 065
  19. ABIRATERONE [Concomitant]
     Active Substance: ABIRATERONE
     Indication: Prostate cancer
     Route: 065
  20. PREDNISONE [Concomitant]
     Active Substance: PREDNISONE
     Indication: Prostate cancer
     Route: 065
  21. PREDNISONE [Concomitant]
     Active Substance: PREDNISONE
     Route: 065
  22. PROVENGE [Concomitant]
     Active Substance: SIPULEUCEL-T
     Indication: Prostate cancer
     Route: 065
  23. ASPIRIN [Concomitant]
     Active Substance: ASPIRIN
     Route: 065
  24. ZOLEDRONIC ACID [Concomitant]
     Active Substance: ZOLEDRONIC ACID
     Route: 065
  25. ZARXIO [Concomitant]
     Active Substance: FILGRASTIM-SNDZ
     Route: 065
  26. DELSYM [Concomitant]
     Active Substance: DEXTROMETHORPHAN
     Route: 065
  27. TRAMADOL [Concomitant]
     Active Substance: TRAMADOL
     Route: 065
  28. MELOXICAM [Concomitant]
     Active Substance: MELOXICAM
     Route: 065
  29. OXYCODONE [Concomitant]
     Active Substance: OXYCODONE
     Route: 065

REACTIONS (20)
  - Arthralgia [Unknown]
  - Dyspnoea [Unknown]
  - Arthralgia [Unknown]
  - Joint effusion [Unknown]
  - Prostate cancer metastatic [Unknown]
  - Metastases to bone [Unknown]
  - Myocardial infarction [Unknown]
  - Hypoxia [Unknown]
  - Actinic keratosis [Unknown]
  - Hypertension [Unknown]
  - Blood cholesterol increased [Unknown]
  - Oedema peripheral [Unknown]
  - Vitamin D deficiency [Unknown]
  - Fatigue [Unknown]
  - Biopsy bone marrow [Unknown]
  - Infusion related reaction [Unknown]
  - Coronary artery disease [Unknown]
  - Anaemia [Unknown]
  - Coronary arterial stent insertion [Unknown]
  - Tachypnoea [Unknown]
